FAERS Safety Report 16766031 (Version 1)
Quarter: 2019Q3

REPORT INFORMATION
  Report Type: Spontaneous
  Country: DE (occurrence: DE)
  Receive Date: 20190903
  Receipt Date: 20190903
  Transmission Date: 20191005
  Serious: Yes (Other)
  Sender: FDA-Public Use
  Company Number: DE-SA-2019SA177927

PATIENT
  Sex: Female

DRUGS (1)
  1. AUBAGIO [Suspect]
     Active Substance: TERIFLUNOMIDE
     Dosage: UNK UNK, UNK
     Route: 048

REACTIONS (3)
  - Multiple sclerosis relapse [Recovering/Resolving]
  - Disease recurrence [Unknown]
  - Paraparesis [Recovering/Resolving]
